FAERS Safety Report 6713426-8 (Version None)
Quarter: 2010Q2

REPORT INFORMATION
  Report Type: 
  Country: None (occurrence: None)
  Receive Date: 20100503
  Receipt Date: 20100422
  Transmission Date: 20101027
  Serious: Yes (Hospitalization)
  Sender: FDA-Public Use
  Company Number: A-CH2010-35925

PATIENT

DRUGS (1)
  1. ZAVESCA [Suspect]
     Indication: NIEMANN-PICK DISEASE
     Dosage: ORAL
     Route: 048
     Dates: start: 20100201

REACTIONS (2)
  - CONDITION AGGRAVATED [None]
  - CONVULSION [None]
